FAERS Safety Report 9231379 (Version 1)
Quarter: 2013Q2

REPORT INFORMATION
  Report Type: Spontaneous
  Country: US (occurrence: US)
  Receive Date: 20130415
  Receipt Date: 20130415
  Transmission Date: 20140414
  Serious: No
  Sender: FDA-Public Use
  Company Number: US-TEVA-397867USA

PATIENT
  Age: 52 Year
  Sex: Female
  Weight: 69.92 kg

DRUGS (2)
  1. QNASL [Suspect]
     Indication: SEASONAL ALLERGY
     Dosage: 2 SPRAYS IN EACH NOSTRIL BEFORE MEALS
     Route: 045
     Dates: start: 20130402, end: 20130404
  2. LISINOPRIL [Concomitant]
     Indication: HYPERTENSION
     Dosage: 10 MILLIGRAM DAILY;
     Route: 048

REACTIONS (3)
  - Lip swelling [Recovered/Resolved]
  - Swollen tongue [Recovered/Resolved]
  - Inappropriate schedule of drug administration [Unknown]
